FAERS Safety Report 5699108-2 (Version None)
Quarter: 2008Q2

REPORT INFORMATION
  Report Type: 
  Country: None (occurrence: None)
  Receive Date: 20080407
  Receipt Date: 20080407
  Transmission Date: 20081010
  Serious: No
  Sender: FDA-Public Use
  Company Number: None

PATIENT
  Age: 27 Year
  Sex: Male
  Weight: 97.5234 kg

DRUGS (1)
  1. CELEXA [Suspect]
     Indication: DEPRESSION
     Dosage: 20MG ONCE DAILY PO
     Route: 048
     Dates: start: 20010215, end: 20040115

REACTIONS (2)
  - EMOTIONAL DISORDER [None]
  - SEXUAL DYSFUNCTION [None]
